FAERS Safety Report 9410229 (Version 2)
Quarter: 2013Q2

REPORT INFORMATION
  Report Type: Spontaneous
  Country: US (occurrence: None)
  Receive Date: 20130606
  Receipt Date: 20130618
  Transmission Date: 20140414
  Serious: Yes (Other)
  Sender: FDA-Public Use
  Company Number: JPI-P-032337

PATIENT
  Age: 60 Year
  Sex: Male
  Weight: 102.06 kg

DRUGS (13)
  1. XYREM (500 MILLIGRAM/MILLILITERS, SOLUTION) (SODIUM OXYBATE) [Suspect]
     Indication: CATAPLEXY
     Dosage: 4.5 GM (2.25 GM,2 IN 1 D), ORAL?
     Route: 048
     Dates: start: 20130518
  2. CYMBALTA [Concomitant]
  3. ESOMEPRAZOLE MAGNESIUM [Concomitant]
  4. SIMVASTATIN [Concomitant]
  5. CHLORTHALIDONE [Concomitant]
  6. LISINOPRIL [Concomitant]
  7. AMLODIPINE [Concomitant]
  8. METOPROLOL [Concomitant]
  9. FESOTERODINE [Concomitant]
  10. ASPIRIN EC [Concomitant]
  11. TESTOSTERONE CYPIONATE [Concomitant]
  12. METFORMIN [Concomitant]
  13. DULOXETINE [Concomitant]

REACTIONS (4)
  - Diabetes mellitus [None]
  - Feeling hot [None]
  - Abnormal dreams [None]
  - Palpitations [None]
